FAERS Safety Report 4673750-X (Version None)
Quarter: 2005Q2

REPORT INFORMATION
  Report Type: 
  Country: None (occurrence: None)
  Receive Date: 20050524
  Receipt Date: 20050511
  Transmission Date: 20051028
  Serious: Yes (Hospitalization, Disabling, Other)
  Sender: FDA-Public Use
  Company Number: 2004222710GB

PATIENT
  Age: 39 Year
  Sex: Female
  Weight: 73 kg

DRUGS (3)
  1. GENOTROPIN [Suspect]
     Indication: HYPOPITUITARISM
     Dosage: 1.2 MG  (1.2 MG, DAILY), SUBCUTANEOUS
     Route: 058
     Dates: start: 20010201
  2. MICROGYNON (ETHYINYLESTRADIOL, LEVONORTESTREL) [Concomitant]
  3. PENTOSAN POLYSULFATE                  (PENTOSAN POLYSULFATE) [Concomitant]

REACTIONS (2)
  - CREUTZFELDT-JAKOB DISEASE [None]
  - PHARMACEUTICAL PRODUCT COMPLAINT [None]
